FAERS Safety Report 7483656-9 (Version None)
Quarter: 2011Q2

REPORT INFORMATION
  Report Type: 
  Country: None (occurrence: None)
  Receive Date: 20110517
  Receipt Date: 20110513
  Transmission Date: 20111010
  Serious: No
  Sender: FDA-Public Use
  Company Number: US-PFIZER INC-2011103676

PATIENT
  Sex: Female
  Weight: 68.027 kg

DRUGS (1)
  1. PRISTIQ [Suspect]
     Indication: DEPRESSION
     Dosage: 50 MG, 1X/DAY
     Route: 048
     Dates: start: 20110513

REACTIONS (9)
  - TREMOR [None]
  - DYSPNOEA [None]
  - HEADACHE [None]
  - FRUSTRATION [None]
  - DEPRESSION [None]
  - FATIGUE [None]
  - EMOTIONAL DISORDER [None]
  - ABDOMINAL PAIN UPPER [None]
  - CRYING [None]
